FAERS Safety Report 20820333 (Version 1)
Quarter: 2022Q2

REPORT INFORMATION
  Report Type: Spontaneous
  Country: US (occurrence: None)
  Receive Date: 20220512
  Receipt Date: 20220512
  Transmission Date: 20220721
  Serious: No
  Sender: FDA-Public Use
  Company Number: None

PATIENT
  Sex: Male

DRUGS (1)
  1. HUMIRA [Suspect]
     Active Substance: ADALIMUMAB
     Indication: Psoriasis
     Dosage: OTHER QUANTITY : 40 /0.4 MG/ML;?OTHER FREQUENCY : EVERY 14 DAYS;?
     Dates: start: 202007

REACTIONS (2)
  - Drug ineffective [None]
  - Therapy cessation [None]
